FAERS Safety Report 9477306 (Version 1)
Quarter: 2013Q3

REPORT INFORMATION
  Report Type: Spontaneous
  Country: IT (occurrence: IT)
  Receive Date: 20130826
  Receipt Date: 20130826
  Transmission Date: 20140515
  Serious: Yes (Other)
  Sender: FDA-Public Use
  Company Number: IT-ASTRAZENECA-2013SE64331

PATIENT
  Age: 9947 Day
  Sex: Female

DRUGS (5)
  1. SEROQUEL [Suspect]
     Indication: INTENTIONAL OVERDOSE
     Route: 048
  2. SEROQUEL [Suspect]
     Indication: INTENTIONAL OVERDOSE
     Route: 048
     Dates: start: 20130601, end: 20130601
  3. FELISON [Suspect]
     Indication: INTENTIONAL OVERDOSE
     Route: 048
  4. FELISON [Suspect]
     Indication: INTENTIONAL OVERDOSE
     Route: 048
     Dates: start: 20130601, end: 20130601
  5. SODIUM HYPOCHLORITE [Concomitant]
     Route: 042

REACTIONS (2)
  - Intentional drug misuse [Recovered/Resolved]
  - Sopor [Recovered/Resolved]
